FAERS Safety Report 14284008 (Version 2)
Quarter: 2018Q1

REPORT INFORMATION
  Report Type: Spontaneous
  Country: US (occurrence: US)
  Receive Date: 20171214
  Receipt Date: 20180206
  Transmission Date: 20180509
  Serious: Yes (Hospitalization, Other)
  Sender: FDA-Public Use
  Company Number: US-ALEMBIC PHARMACUETICALS LIMITED-2017SCAL000970

PATIENT

DRUGS (1)
  1. LITHIUM CARBONATE. [Suspect]
     Active Substance: LITHIUM CARBONATE
     Indication: BIPOLAR DISORDER
     Dosage: UNK

REACTIONS (14)
  - Vomiting [Recovering/Resolving]
  - Drug reaction with eosinophilia and systemic symptoms [Recovering/Resolving]
  - Headache [Recovered/Resolved]
  - Pyrexia [Recovering/Resolving]
  - Nausea [Recovering/Resolving]
  - Photophobia [Recovering/Resolving]
  - Rash pruritic [Recovering/Resolving]
  - Myocarditis [Recovering/Resolving]
  - Rash maculo-papular [Recovering/Resolving]
  - Angioedema [Recovering/Resolving]
  - Myalgia [Recovering/Resolving]
  - Transaminases increased [Recovering/Resolving]
  - Tubulointerstitial nephritis [Recovering/Resolving]
  - Myositis [Recovering/Resolving]
